FAERS Safety Report 9189395 (Version 1)
Quarter: 2013Q1

REPORT INFORMATION
  Report Type: Spontaneous
  Country: US (occurrence: None)
  Receive Date: 20130322
  Receipt Date: 20130322
  Transmission Date: 20140127
  Serious: Yes (Hospitalization, Other)
  Sender: FDA-Public Use
  Company Number: 2013-04747

PATIENT
  Age: 45 Year
  Sex: Female

DRUGS (9)
  1. GABAPENTIN [Suspect]
     Indication: PRODUCT USED FOR UNKNOWN INDICATION
  2. SERTRALINE HYDROCHLORIDE [Suspect]
     Indication: PRODUCT USED FOR UNKNOWN INDICATION
  3. TIZANIDINE HYDROCHLORIDE [Suspect]
     Indication: PRODUCT USED FOR UNKNOWN INDICATION
  4. AMPYRA [Suspect]
     Indication: GAIT DISTURBANCE
     Dates: start: 201209, end: 201210
  5. PRILOSEC /00661201/ [Suspect]
     Indication: PRODUCT USED FOR UNKNOWN INDICATION
  6. SEROQUEL (QUETIAPINE FUMARATE) [Suspect]
     Indication: PRODUCT USED FOR UNKNOWN INDICATION
  7. FLONASE [Suspect]
     Indication: PRODUCT USED FOR UNKNOWN INDICATION
  8. CELEBREX (CELECOXIB) [Suspect]
     Indication: PRODUCT USED FOR UNKNOWN INDICATION
  9. DEPO PROVERA [Suspect]
     Indication: CONTRACEPTION
     Dates: end: 201212

REACTIONS (10)
  - Renal failure acute [None]
  - Pancreatitis acute [None]
  - Gallbladder disorder [None]
  - Gastrooesophageal reflux disease [None]
  - Paranoia [None]
  - Hypertension [None]
  - Hypotension [None]
  - Hypokalaemia [None]
  - Multiple sclerosis relapse [None]
  - Obesity [None]
